FAERS Safety Report 9001440 (Version 1)
Quarter: 2013Q1

REPORT INFORMATION
  Report Type: Spontaneous
  Country: US (occurrence: US)
  Receive Date: 20130107
  Receipt Date: 20130107
  Transmission Date: 20140127
  Serious: Yes (Death, Hospitalization)
  Sender: FDA-Public Use
  Company Number: US-ASTRAZENECA-2013SE00508

PATIENT
  Age: 76 Year
  Sex: Male
  Weight: 99.3 kg

DRUGS (2)
  1. NEXIUM [Suspect]
     Indication: GASTROOESOPHAGEAL REFLUX DISEASE
     Route: 048
     Dates: start: 2011
  2. INSULIN [Concomitant]

REACTIONS (4)
  - Sepsis [Fatal]
  - Myocardial infarction [Fatal]
  - Cerebrovascular accident [Fatal]
  - Urinary tract infection [Unknown]
